FAERS Safety Report 10164708 (Version 2)
Quarter: 2014Q2

REPORT INFORMATION
  Report Type: Spontaneous
  Country: US (occurrence: US)
  Receive Date: 20140510
  Receipt Date: 20140510
  Transmission Date: 20141212
  Serious: No
  Sender: FDA-Public Use
  Company Number: US-BRISTOL-MYERS SQUIBB COMPANY-19447416

PATIENT
  Age: 57 Year
  Sex: Male
  Weight: 95.24 kg

DRUGS (13)
  1. BYETTA PEN DISPOSABLE [Suspect]
     Indication: TYPE 2 DIABETES MELLITUS
     Dosage: 10MCG INJECTION ON 22SSEP2013?5MCG/2/1/DAY DOSE ALSO TAKEN
     Route: 058
     Dates: start: 2013, end: 20130923
  2. NOVOLOG [Concomitant]
  3. LANTUS [Concomitant]
  4. METFORMIN [Concomitant]
  5. GLUCAGON [Concomitant]
  6. NIACIN [Concomitant]
  7. FISH OIL [Concomitant]
  8. CARVEDILOL [Concomitant]
  9. LISINOPRIL [Concomitant]
     Dosage: 1DF:20-25MG
     Route: 048
  10. NAPROXEN [Concomitant]
  11. ASPIRIN [Concomitant]
  12. MULTIVITAMIN [Concomitant]
     Route: 048
  13. HYDROCODONE + ACETAMINOPHEN [Concomitant]
     Indication: PAIN
     Dosage: 1DF:5-325 MG

REACTIONS (4)
  - Drug prescribing error [Unknown]
  - Decreased appetite [Recovered/Resolved]
  - Nausea [Recovered/Resolved]
  - Vomiting [Unknown]
